FAERS Safety Report 8849485 (Version 2)
Quarter: 2012Q4

REPORT INFORMATION
  Report Type: Spontaneous
  Country: US (occurrence: None)
  Receive Date: 20121017
  Receipt Date: 20121023
  Transmission Date: 20130627
  Serious: Yes (Hospitalization)
  Sender: FDA-Public Use
  Company Number: 2012AP003322

PATIENT
  Age: 74 Year
  Sex: Male

DRUGS (15)
  1. CLOPIDOGREL TABLETS USP [Suspect]
     Indication: CORONARY ARTERY DISEASE
     Dates: start: 20020807, end: 20100425
  2. CLOPIDOGREL TABLETS USP [Suspect]
     Indication: CORONARY ARTERY DISEASE
     Dates: start: 20100425, end: 20100504
  3. ASPIRIN [Concomitant]
  4. RANOLAZINE [Concomitant]
  5. TAMSULOSIN [Concomitant]
  6. LEVOTHYROXINE SODIUZM [Concomitant]
  7. ESOMEPRAZOLE [Concomitant]
  8. HYZAAR [Concomitant]
  9. NIASPAN [Concomitant]
  10. FENOFIBRATE [Concomitant]
  11. ISOSORBIDE MONONITRATE [Concomitant]
  12. SIMVASTATIN [Concomitant]
  13. WARFARIN [Concomitant]
  14. AMLODIPINE [Concomitant]
  15. METOPROLOL [Concomitant]

REACTIONS (4)
  - Coronary artery restenosis [None]
  - Platelet function test abnormal [None]
  - Drug resistance [None]
  - Drug ineffective [None]
